FAERS Safety Report 4738079-X (Version None)
Quarter: 2005Q3

REPORT INFORMATION
  Report Type: 
  Country: None (occurrence: None)
  Receive Date: 20050809
  Receipt Date: 20050801
  Transmission Date: 20060218
  Serious: Yes (Other)
  Sender: FDA-Public Use
  Company Number: 200516949GDDC

PATIENT
  Age: 59 Year
  Sex: Male

DRUGS (4)
  1. LEFLUNOMIDE [Suspect]
     Indication: RHEUMATOID ARTHRITIS
     Dosage: DOSE: UNK
  2. DICLOFENAC [Concomitant]
     Dosage: DOSE: UNK
  3. PANTOPRAZOLE [Concomitant]
     Dosage: DOSE: UNK
  4. CALCITRIOL [Concomitant]
     Dosage: DOSE: UNK

REACTIONS (3)
  - CUTANEOUS LUPUS ERYTHEMATOSUS [None]
  - RASH ERYTHEMATOUS [None]
  - RASH MACULAR [None]
